FAERS Safety Report 7166724-0 (Version None)
Quarter: 2010Q4

REPORT INFORMATION
  Report Type: 
  Country: None (occurrence: None)
  Receive Date: 20101216
  Receipt Date: 20101206
  Transmission Date: 20110411
  Serious: Yes (Hospitalization)
  Sender: FDA-Public Use
  Company Number: JP-ACTELION-A-JP2005-12097

PATIENT
  Age: 42 Year
  Sex: Female
  Weight: 49 kg

DRUGS (14)
  1. TRACLEER [Suspect]
     Indication: PULMONARY ARTERIAL HYPERTENSION
     Dosage: 125 MG, BID
     Route: 048
     Dates: start: 20050711, end: 20050815
  2. TRACLEER [Suspect]
     Dosage: 62.5 MG, BID
     Route: 048
     Dates: start: 20050613, end: 20050710
  3. TRACLEER [Suspect]
     Dosage: 62.5 MG, BID
     Route: 048
     Dates: start: 20050816, end: 20050905
  4. TRACLEER [Suspect]
     Dosage: 93.75 MG, BID
     Route: 048
     Dates: start: 20050906, end: 20051005
  5. TRACLEER [Suspect]
     Dosage: 125 MG, BID
     Route: 048
     Dates: start: 20051006, end: 20060604
  6. TRACLEER [Suspect]
     Dosage: 93.75 MG, BID
     Route: 048
     Dates: start: 20060605, end: 20070217
  7. TRACLEER [Suspect]
     Dosage: 125 MG, BID
     Route: 048
     Dates: start: 20070218
  8. WARFARIN POTASSIUM [Suspect]
  9. BERAPROST SODIUM [Concomitant]
  10. FERRIC PYROPHOSPHATE [Concomitant]
  11. THYROID PREPARATIONS [Concomitant]
  12. FUROSEMIDE [Concomitant]
  13. SPIRONOLACTONE [Concomitant]
  14. EPOPROSTENOL SODIUM [Concomitant]

REACTIONS (5)
  - ALANINE AMINOTRANSFERASE INCREASED [None]
  - ASPARTATE AMINOTRANSFERASE INCREASED [None]
  - COAGULATION TEST ABNORMAL [None]
  - DRUG INTERACTION [None]
  - HEPATIC FUNCTION ABNORMAL [None]
